FAERS Safety Report 11904109 (Version 1)
Quarter: 2016Q1

REPORT INFORMATION
  Report Type: Spontaneous
  Country: CA (occurrence: CA)
  Receive Date: 20160111
  Receipt Date: 20160111
  Transmission Date: 20160526
  Serious: Yes (Hospitalization)
  Sender: FDA-Public Use
  Company Number: CA-ROCHE-1688909

PATIENT
  Age: 5 Month
  Sex: Male
  Weight: 3 kg

DRUGS (1)
  1. VALCYTE [Suspect]
     Active Substance: VALGANCICLOVIR HYDROCHLORIDE
     Indication: ANTIVIRAL PROPHYLAXIS
     Dosage: FORM STRENGTH: 50 MG/ML?DOSE: 25 MG OR 0.5 ML
     Route: 048
     Dates: start: 20151218

REACTIONS (3)
  - Overdose [Unknown]
  - Cytomegalovirus infection [Unknown]
  - Drug administration error [Unknown]
